FAERS Safety Report 10249251 (Version 1)
Quarter: 2014Q2

REPORT INFORMATION
  Report Type: Spontaneous
  Country: US (occurrence: None)
  Receive Date: 20140618
  Receipt Date: 20140618
  Transmission Date: 20141212
  Serious: Yes (Hospitalization)
  Sender: FDA-Public Use
  Company Number: None

PATIENT
  Age: 44 Year
  Sex: Female

DRUGS (2)
  1. LAMICTAL 50MG [Suspect]
     Indication: AFFECTIVE DISORDER
     Dosage: 1/2 TAB FOR 2 WEEKS THEN 1 TAB, QD, ORAL
     Route: 048
     Dates: start: 20140514, end: 20140610
  2. TRAZODONE [Concomitant]

REACTIONS (6)
  - Ocular hyperaemia [None]
  - Throat irritation [None]
  - Conjunctivitis [None]
  - Throat tightness [None]
  - Thermal burn [None]
  - Blister [None]
